FAERS Safety Report 7762275-0 (Version None)
Quarter: 2011Q3

REPORT INFORMATION
  Report Type: 
  Country: None (occurrence: None)
  Receive Date: 20110825
  Receipt Date: 20110718
  Transmission Date: 20111222
  Serious: No
  Sender: FDA-Public Use
  Company Number: 330217

PATIENT
  Age: 71 Year
  Sex: Female

DRUGS (5)
  1. APIDRA [Concomitant]
  2. TYSABRI [Concomitant]
  3. LANTUS [Concomitant]
  4. PREMARIN [Concomitant]
  5. VICTOZA [Suspect]
     Indication: TYPE 2 DIABETES MELLITUS
     Dosage: 1.2 MG, QD, SUBCUTANEOUS, 0.03 SUBCUTANEOUS, 0.6 MG, QD, SUBCUTANEOUS
     Route: 058

REACTIONS (3)
  - SOMNOLENCE [None]
  - ACNE [None]
  - RASH PRURITIC [None]
